FAERS Safety Report 15563821 (Version 3)
Quarter: 2019Q4

REPORT INFORMATION
  Report Type: Report from Study
  Country: PL (occurrence: PL)
  Receive Date: 20181029
  Receipt Date: 20191224
  Transmission Date: 20200122
  Serious: Yes (Other)
  Sender: FDA-Public Use
  Company Number: PL-AMGEN-POLCT2018080169

PATIENT
  Age: 7 Year
  Sex: Male
  Weight: 18 kg

DRUGS (6)
  1. EMOFIX [Concomitant]
     Dosage: 1 GTT DROPS
     Route: 045
     Dates: start: 20160913
  2. RINOPANTEINA [Concomitant]
     Dosage: 1 GTT DROPS
     Route: 045
     Dates: start: 20160913
  3. QUIXX [Concomitant]
     Dosage: 2 GTT DROPS
     Route: 045
     Dates: start: 20160913
  4. JOVESTO [Concomitant]
     Active Substance: DESLORATADINE
     Dosage: 5 MILLILITER
     Route: 048
     Dates: start: 20150201
  5. FERRUM LEK [Concomitant]
     Dosage: 6 MILLILITER
     Route: 048
     Dates: start: 20180516
  6. ROMIPLOSTIM [Suspect]
     Active Substance: ROMIPLOSTIM
     Indication: IMMUNE THROMBOCYTOPENIC PURPURA
     Dosage: 0.126 MILLILITER
     Route: 058
     Dates: start: 20160316, end: 20180605

REACTIONS (1)
  - Neutralising antibodies positive [Recovered/Resolved]

NARRATIVE: CASE EVENT DATE: 20180607
